FAERS Safety Report 6966765-X (Version None)
Quarter: 2010Q3

REPORT INFORMATION
  Report Type: 
  Country: None (occurrence: None)
  Receive Date: 20100906
  Receipt Date: 20100902
  Transmission Date: 20110219
  Serious: Yes (Death)
  Sender: FDA-Public Use
  Company Number: JP-BRISTOL-MYERS SQUIBB COMPANY-15256811

PATIENT
  Age: 53 Year
  Weight: 71 kg

DRUGS (21)
  1. CISPLATIN [Suspect]
     Indication: CERVIX CARCINOMA STAGE IV
     Route: 042
     Dates: start: 20100811, end: 20100825
  2. S-1 [Suspect]
     Indication: CERVIX CARCINOMA STAGE IV
     Dosage: TOTAL DOSE IS 120MG
     Route: 048
     Dates: start: 20100811, end: 20100824
  3. VOLTAREN [Concomitant]
     Indication: TUMOUR PAIN
     Route: 048
     Dates: start: 20100806, end: 20100816
  4. SELBEX [Concomitant]
     Indication: GASTRITIS PROPHYLAXIS
     Route: 048
     Dates: start: 20100805, end: 20100812
  5. OMEPRAL [Concomitant]
     Indication: GASTRITIS ATROPHIC
     Route: 048
     Dates: start: 20100810, end: 20100816
  6. MAGLAX [Concomitant]
     Indication: CONSTIPATION
     Route: 048
     Dates: start: 20100804, end: 20100820
  7. ISOTONIC SODIUM CHLORIDE [Concomitant]
     Indication: FLUID REPLACEMENT
     Dosage: 1000ML:18AUG10:23AUG10
     Route: 041
     Dates: start: 20100811, end: 20100811
  8. VEEN-F [Concomitant]
     Indication: FLUID REPLACEMENT
     Dosage: 1000-1500ML
     Route: 041
     Dates: start: 20100811, end: 20100814
  9. RAMELTEON [Concomitant]
     Indication: FLUID REPLACEMENT
     Route: 041
     Dates: start: 20100811, end: 20100814
  10. SODIUM CHLORIDE [Concomitant]
     Indication: HYPONATRAEMIA
     Dosage: 200ML:18AUG2010
     Route: 041
     Dates: start: 20100811, end: 20100814
  11. SODIUM CHLORIDE [Concomitant]
     Indication: FLUID REPLACEMENT
     Dosage: 200ML:18AUG2010
     Route: 041
     Dates: start: 20100811, end: 20100814
  12. FUROSEMIDE [Concomitant]
     Indication: FLUID REPLACEMENT
     Route: 041
     Dates: start: 20100811, end: 20100811
  13. SOLDEM 3A [Concomitant]
     Indication: FLUID REPLACEMENT
     Dosage: 1000-2000ML
     Route: 041
     Dates: start: 20100811, end: 20100814
  14. OXYCONTIN [Concomitant]
     Indication: TUMOUR PAIN
     Dosage: 5-15MG
     Route: 048
     Dates: start: 20100813
  15. HYPEN [Concomitant]
     Indication: TUMOUR PAIN
     Route: 048
     Dates: start: 20100813, end: 20100820
  16. NOVAMIN [Concomitant]
     Indication: PROPHYLAXIS OF NAUSEA AND VOMITING
     Route: 048
     Dates: start: 20100813, end: 20100820
  17. ADOFEED [Concomitant]
     Indication: TUMOUR PAIN
     Dates: start: 20100816, end: 20100817
  18. MYSLEE [Concomitant]
     Indication: INSOMNIA
     Route: 048
     Dates: start: 20100819, end: 20100820
  19. FLUMARIN [Concomitant]
     Indication: INFECTION
     Route: 041
     Dates: start: 20100818
  20. POTACOL-R [Concomitant]
     Indication: INFECTION
     Route: 041
     Dates: start: 20100818
  21. VOLTAREN [Concomitant]
     Route: 048
     Dates: start: 20100820

REACTIONS (1)
  - PERITONEAL HAEMORRHAGE [None]
